FAERS Safety Report 5118787-1 (Version None)
Quarter: 2006Q4

REPORT INFORMATION
  Report Type: 
  Country: None (occurrence: None)
  Receive Date: 20060927
  Receipt Date: 20060915
  Transmission Date: 20070319
  Serious: Yes (Hospitalization)
  Sender: FDA-Public Use
  Company Number: 2006-142592-NL

PATIENT
  Age: 26 Year
  Sex: Female
  Weight: 62.6 kg

DRUGS (1)
  1. NUVARING [Suspect]
     Indication: CONTRACEPTION
     Dosage: VAGINAL, 3 WEEKS IN, 1 WEEK OUT
     Route: 067
     Dates: start: 20050901, end: 20060301

REACTIONS (6)
  - ANAEMIA [None]
  - FEELING ABNORMAL [None]
  - HAEMATOMA [None]
  - OEDEMA PERIPHERAL [None]
  - PAIN IN EXTREMITY [None]
  - PULMONARY THROMBOSIS [None]
